FAERS Safety Report 9513049 (Version 2)
Quarter: 2014Q1

REPORT INFORMATION
  Report Type: Spontaneous
  Country: US (occurrence: None)
  Receive Date: 20130305
  Receipt Date: 20140306
  Transmission Date: 20141002
  Serious: Yes (Other)
  Sender: FDA-Public Use
  Company Number: 163-21880-12093214

PATIENT
  Age: 58 Year
  Sex: Female

DRUGS (2)
  1. REVLIMID [Suspect]
     Indication: PLASMA CELL MYELOMA
     Dosage: 25 MG, 14 IN 14 D
     Route: 048
     Dates: start: 20120906
  2. MULTIVITAMINS [Concomitant]

REACTIONS (5)
  - Drug dose omission [None]
  - Nausea [None]
  - Pruritus [None]
  - Fatigue [None]
  - Insomnia [None]
